FAERS Safety Report 19434374 (Version 1)
Quarter: 2021Q2

REPORT INFORMATION
  Report Type: Spontaneous
  Country: NL (occurrence: NL)
  Receive Date: 20210618
  Receipt Date: 20210618
  Transmission Date: 20210717
  Serious: Yes (Other)
  Sender: FDA-Public Use
  Company Number: NL-TEVA-2021-NL-1922862

PATIENT
  Age: 45 Year
  Sex: Male
  Weight: 115 kg

DRUGS (1)
  1. QUETIAPINE FUMARAAT / BRAND NAME NOT SPECIFIED [Suspect]
     Active Substance: QUETIAPINE FUMARATE
     Indication: SLEEP DISORDER
     Dosage: 1 DOSAGE FORMS DAILY;
     Route: 065
     Dates: start: 2018, end: 20180531

REACTIONS (2)
  - Diabetes mellitus [Not Recovered/Not Resolved]
  - Visual impairment [Not Recovered/Not Resolved]

NARRATIVE: CASE EVENT DATE: 20200421
